FAERS Safety Report 12625493 (Version 7)
Quarter: 2021Q4

REPORT INFORMATION
  Report Type: Report from Study
  Country: JP (occurrence: JP)
  Receive Date: 20160805
  Receipt Date: 20211231
  Transmission Date: 20220303
  Serious: Yes (Death, Hospitalization, Other)
  Sender: FDA-Public Use
  Company Number: JP-002147023-PHJP2016JP021323

PATIENT

DRUGS (12)
  1. RUXOLITINIB [Suspect]
     Active Substance: RUXOLITINIB
     Indication: Myelofibrosis
     Dosage: 15 MG, BID
     Route: 048
     Dates: start: 20160428, end: 20160601
  2. RUXOLITINIB [Suspect]
     Active Substance: RUXOLITINIB
     Dosage: 10 MG, BID
     Route: 048
     Dates: start: 20160602, end: 20160610
  3. RUXOLITINIB [Suspect]
     Active Substance: RUXOLITINIB
     Dosage: 25 MG (IN TWO DIVIDED DOSES), BID
     Route: 048
     Dates: start: 20160611, end: 20160724
  4. RUXOLITINIB [Suspect]
     Active Substance: RUXOLITINIB
     Dosage: 15 MG, BID
     Route: 048
     Dates: start: 20160725
  5. HUMAN RED BLOOD CELL [Concomitant]
     Active Substance: HUMAN RED BLOOD CELL
     Indication: Myelofibrosis
     Dosage: 2 IU, UNK
     Route: 065
     Dates: start: 20160518, end: 20160518
  6. HUMAN RED BLOOD CELL [Concomitant]
     Active Substance: HUMAN RED BLOOD CELL
     Dosage: 2 UNK
     Route: 065
     Dates: start: 20160719, end: 20160719
  7. HUMAN RED BLOOD CELL [Concomitant]
     Active Substance: HUMAN RED BLOOD CELL
     Dosage: 2 UNK
     Route: 065
     Dates: start: 20160726, end: 20160726
  8. AZOSEMIDE [Concomitant]
     Active Substance: AZOSEMIDE
     Indication: Myelofibrosis
     Dosage: 30 MG, UNK
     Route: 048
     Dates: start: 20160611
  9. FEBUXOSTAT [Concomitant]
     Active Substance: FEBUXOSTAT
     Indication: Myelofibrosis
     Dosage: 10 MG, UNK
     Route: 048
  10. CLOPIDOGREL [Concomitant]
     Active Substance: CLOPIDOGREL BISULFATE
     Indication: Myelofibrosis
     Dosage: 75 MG, UNK
     Route: 048
  11. OLMESARTAN MEDOXOMIL [Concomitant]
     Active Substance: OLMESARTAN MEDOXOMIL
     Indication: Myelofibrosis
     Dosage: 10 MG, UNK
     Route: 048
     Dates: end: 20160720
  12. RABEPRAZOLE [Concomitant]
     Active Substance: RABEPRAZOLE
     Indication: Essential thrombocythaemia
     Dosage: 10 MG, UNK
     Route: 048

REACTIONS (11)
  - Blood alkaline phosphatase increased [Recovering/Resolving]
  - Anaemia [Not Recovered/Not Resolved]
  - Cardiac failure [Fatal]
  - Lymphoedema [Not Recovered/Not Resolved]
  - Pleural effusion [Fatal]
  - Pneumonia [Fatal]
  - Malignant neoplasm progression [Unknown]
  - Myelofibrosis [Unknown]
  - Renal impairment [Not Recovered/Not Resolved]
  - Hepatic function abnormal [Not Recovered/Not Resolved]
  - Concomitant disease progression [Not Recovered/Not Resolved]

NARRATIVE: CASE EVENT DATE: 20160428
